FAERS Safety Report 10151956 (Version 2)
Quarter: 2014Q2

REPORT INFORMATION
  Report Type: Spontaneous
  Country: US (occurrence: US)
  Receive Date: 20140505
  Receipt Date: 20140618
  Transmission Date: 20141212
  Serious: Yes (Hospitalization, Other)
  Sender: FDA-Public Use
  Company Number: US-ELI_LILLY_AND_COMPANY-US201404009442

PATIENT
  Sex: Male

DRUGS (17)
  1. HUMALOG LISPRO [Suspect]
     Indication: TYPE 1 DIABETES MELLITUS
     Dosage: UNK
     Route: 058
     Dates: start: 2011
  2. HUMALOG LISPRO [Suspect]
     Dosage: 8 U, BID
     Route: 058
     Dates: end: 201402
  3. HUMALOG LISPRO [Suspect]
     Dosage: 15 U, EACH EVENING
     Route: 058
     Dates: end: 201402
  4. HUMALOG LISPRO [Suspect]
     Dosage: 5 U, PRN
     Route: 058
     Dates: end: 201402
  5. HUMALOG LISPRO [Suspect]
     Indication: TYPE 1 DIABETES MELLITUS
     Dosage: 8 U, BID
     Route: 058
     Dates: start: 201402
  6. HUMALOG LISPRO [Suspect]
     Dosage: 15 U, EACH EVENING
     Route: 058
     Dates: start: 201402
  7. HUMALOG LISPRO [Suspect]
     Dosage: 5 U, PRN
     Route: 058
     Dates: start: 201402
  8. VIOXX [Suspect]
     Indication: PRODUCT USED FOR UNKNOWN INDICATION
     Route: 065
  9. LANTUS [Concomitant]
     Dosage: 36 U, EACH EVENING
     Route: 065
  10. METHOTREXATE [Concomitant]
     Indication: ARTHRITIS
     Dosage: 8 DF, WEEKLY (1/W)
  11. GABAPENTIN [Concomitant]
     Indication: NEUROPATHY PERIPHERAL
     Dosage: 3 DF, UNKNOWN
  12. OMEPRAZOLE [Concomitant]
  13. LISINOPRIL [Concomitant]
  14. HYDROCHLOROTHIAZIDE [Concomitant]
  15. CENTRUM                            /06011801/ [Concomitant]
  16. GLUCOSAMINE [Concomitant]
  17. FISH OIL [Concomitant]

REACTIONS (17)
  - Renal failure chronic [Not Recovered/Not Resolved]
  - Hypersensitivity [Unknown]
  - Myocardial infarction [Unknown]
  - Appendicitis perforated [Unknown]
  - Hypertension [Unknown]
  - Blood magnesium decreased [Unknown]
  - Blood calcium decreased [Unknown]
  - Immune system disorder [Unknown]
  - Nerve injury [Unknown]
  - Mobility decreased [Unknown]
  - Glycosylated haemoglobin increased [Not Recovered/Not Resolved]
  - Blood glucose increased [Unknown]
  - Weight increased [Unknown]
  - Sensory loss [Unknown]
  - Peripheral swelling [Unknown]
  - Joint swelling [Unknown]
  - Blood creatinine increased [Unknown]
